FAERS Safety Report 19160389 (Version 5)
Quarter: 2021Q3

REPORT INFORMATION
  Report Type: Spontaneous
  Country: JP (occurrence: JP)
  Receive Date: 20210420
  Receipt Date: 20210721
  Transmission Date: 20211014
  Serious: Yes (Other)
  Sender: FDA-Public Use
  Company Number: JP-PFIZER INC-2021388973

PATIENT
  Age: 7 Year
  Sex: Male
  Weight: 27 kg

DRUGS (4)
  1. BIOTIN [Concomitant]
     Active Substance: BIOTIN
     Dosage: UNK
     Route: 048
     Dates: start: 20210308, end: 20210308
  2. ATARAX?P [Suspect]
     Active Substance: HYDROXYZINE HYDROCHLORIDE
     Indication: DERMATITIS
     Dosage: 1 G, 1X/DAY
     Route: 048
     Dates: start: 20210308, end: 20210308
  3. ATARAX?P [Suspect]
     Active Substance: HYDROXYZINE HYDROCHLORIDE
     Indication: PRURITUS
  4. CINAL [ASCORBIC ACID;CALCIUM PANTOTHENATE] [Concomitant]
     Dosage: UNK
     Route: 048
     Dates: start: 20210308, end: 20210308

REACTIONS (2)
  - Enuresis [Recovered/Resolved]
  - Urinary incontinence [Recovered/Resolved]

NARRATIVE: CASE EVENT DATE: 20210308
